FAERS Safety Report 8840136 (Version 2)
Quarter: 2013Q4

REPORT INFORMATION
  Report Type: Spontaneous
  Country: FR (occurrence: FR)
  Receive Date: 20121015
  Receipt Date: 20131009
  Transmission Date: 20140711
  Serious: Yes (Hospitalization)
  Sender: FDA-Public Use
  Company Number: FR-ROCHE-1144439

PATIENT
  Age: 14 Year
  Sex: Female

DRUGS (2)
  1. ROCEPHINE [Suspect]
     Indication: OSTEOARTHRITIS
     Route: 042
     Dates: start: 20120727, end: 20120906
  2. RIFADINE [Concomitant]
     Route: 048
     Dates: start: 20120725

REACTIONS (2)
  - Cholelithiasis [Unknown]
  - Biliary colic [Recovered/Resolved]
